FAERS Safety Report 22114433 (Version 1)
Quarter: 2023Q1

REPORT INFORMATION
  Report Type: Report from Study
  Country: JP (occurrence: JP)
  Receive Date: 20230320
  Receipt Date: 20230320
  Transmission Date: 20230418
  Serious: Yes (Hospitalization)
  Sender: FDA-Public Use
  Company Number: JP-MH-2023M1027235AA

PATIENT
  Age: 67 Year
  Sex: Female
  Weight: 47 kg

DRUGS (8)
  1. ATEZOLIZUMAB [Suspect]
     Active Substance: ATEZOLIZUMAB
     Indication: Triple negative breast cancer
     Dosage: BIWEEKLY
     Route: 042
     Dates: start: 20181226
  2. PACLITAXEL [Suspect]
     Active Substance: PACLITAXEL
     Indication: Triple negative breast cancer
     Dosage: QW
     Route: 042
     Dates: start: 20181226, end: 20190506
  3. CYCLOPHOSPHAMIDE [Suspect]
     Active Substance: CYCLOPHOSPHAMIDE
     Indication: Triple negative breast cancer
     Dosage: 810 MILLIGRAM, BIWEEKLY
     Route: 042
     Dates: start: 20190325
  4. CYCLOPHOSPHAMIDE [Suspect]
     Active Substance: CYCLOPHOSPHAMIDE
     Dosage: 604.8 MILLIGRAM, BIWEEKLY
     Route: 042
     Dates: start: 20190506
  5. PEGFILGRASTIM [Concomitant]
     Active Substance: PEGFILGRASTIM
     Indication: Product used for unknown indication
     Dosage: 3.6 MILLIGRAM, QD
     Route: 058
     Dates: start: 20190327, end: 20190327
  6. PEGFILGRASTIM [Concomitant]
     Active Substance: PEGFILGRASTIM
     Dosage: 3.6 MILLIGRAM, QD
     Route: 058
     Dates: start: 20190411, end: 20190411
  7. PEGFILGRASTIM [Concomitant]
     Active Substance: PEGFILGRASTIM
     Dosage: 3.6 MILLIGRAM, QD
     Route: 058
     Dates: start: 20190424, end: 20190424
  8. PEGFILGRASTIM [Concomitant]
     Active Substance: PEGFILGRASTIM
     Dosage: 3.6 MILLIGRAM, QD
     Route: 058
     Dates: start: 20190508, end: 20190508

REACTIONS (3)
  - Anaemia [Recovered/Resolved]
  - Fatigue [Unknown]
  - Decreased appetite [Unknown]

NARRATIVE: CASE EVENT DATE: 20190409
